FAERS Safety Report 6407446-0 (Version None)
Quarter: 2009Q4

REPORT INFORMATION
  Report Type: 
  Country: None (occurrence: None)
  Receive Date: 20091020
  Receipt Date: 20091014
  Transmission Date: 20100525
  Serious: Yes (Hospitalization, Other)
  Sender: FDA-Public Use
  Company Number: FR-BRISTOL-MYERS SQUIBB COMPANY-14773618

PATIENT
  Age: 49 Year
  Sex: Male
  Weight: 65 kg

DRUGS (7)
  1. ABILIFY [Suspect]
     Dosage: INCREASED FROM 5MG/D TO 15MG AND THEN TO 20MG/D RESTARTED ON 08-SEP-2009
     Dates: start: 20090701, end: 20090801
  2. RISPERDAL [Suspect]
  3. MECIR [Concomitant]
     Indication: URINARY RETENTION
     Route: 048
     Dates: start: 20090716
  4. PRAZEPAM [Concomitant]
     Indication: ANXIETY
     Route: 048
     Dates: start: 20090625
  5. PRAZEPAM [Concomitant]
     Indication: AKATHISIA
     Route: 048
     Dates: start: 20090625
  6. LEPTICUR [Concomitant]
     Indication: TREMOR
     Dosage: 2 DF = 2 (UNITS NOT SPECIFIED) LEPTICUR PARK
     Route: 048
     Dates: start: 20090623
  7. LEPTICUR [Concomitant]
     Indication: MUSCLE CONTRACTURE
     Dosage: 2 DF = 2 (UNITS NOT SPECIFIED) LEPTICUR PARK
     Route: 048
     Dates: start: 20090623

REACTIONS (4)
  - CONFUSIONAL STATE [None]
  - LUNG DISORDER [None]
  - MYOPERICARDITIS [None]
  - URINARY RETENTION [None]
